FAERS Safety Report 9028867 (Version 1)
Quarter: 2013Q1

REPORT INFORMATION
  Report Type: Spontaneous
  Country: US (occurrence: US)
  Receive Date: 20130124
  Receipt Date: 20130124
  Transmission Date: 20140127
  Serious: Yes (Other)
  Sender: FDA-Public Use
  Company Number: US-JNJFOC-20130106674

PATIENT
  Sex: Male
  Weight: 105.24 kg

DRUGS (7)
  1. DURAGESIC [Suspect]
     Indication: PSORIATIC ARTHROPATHY
     Route: 062
  2. DURAGESIC [Suspect]
     Indication: RHEUMATOID ARTHRITIS
     Route: 062
  3. DUROGESIC [Suspect]
     Indication: PRODUCT USED FOR UNKNOWN INDICATION
     Route: 062
  4. ENALAPRIL [Concomitant]
     Indication: BLOOD PRESSURE
     Route: 065
  5. ALTACE [Concomitant]
     Indication: BLOOD PRESSURE
     Route: 065
  6. NIASPAN [Concomitant]
     Indication: BLOOD CHOLESTEROL
     Route: 065
  7. ZOCOR [Concomitant]
     Indication: BLOOD CHOLESTEROL
     Route: 065

REACTIONS (5)
  - Pain [Not Recovered/Not Resolved]
  - Blood pressure increased [Not Recovered/Not Resolved]
  - Product quality issue [Not Recovered/Not Resolved]
  - Dermatitis contact [Not Recovered/Not Resolved]
  - Wrong technique in drug usage process [Unknown]
